FAERS Safety Report 10470510 (Version 3)
Quarter: 2014Q4

REPORT INFORMATION
  Report Type: Report from Study
  Country: US (occurrence: US)
  Receive Date: 20140923
  Receipt Date: 20141013
  Transmission Date: 20150528
  Serious: Yes (Hospitalization, Other)
  Sender: FDA-Public Use
  Company Number: US-SA-2014SA129903

PATIENT
  Age: 54 Year
  Sex: Female

DRUGS (3)
  1. VITAMIN B12 [Concomitant]
     Active Substance: CYANOCOBALAMIN
  2. AUBAGIO [Suspect]
     Active Substance: TERIFLUNOMIDE
     Indication: MULTIPLE SCLEROSIS
     Route: 048
     Dates: start: 20140912, end: 20140923
  3. NEURONTIN [Concomitant]
     Active Substance: GABAPENTIN

REACTIONS (17)
  - Confusional state [Unknown]
  - Muscular weakness [Unknown]
  - Nausea [Recovering/Resolving]
  - Neuralgia [Unknown]
  - Sleep disorder [Unknown]
  - Glare [Recovered/Resolved]
  - Multiple sclerosis relapse [Unknown]
  - Asthenia [Unknown]
  - Back pain [Unknown]
  - Fatigue [Unknown]
  - Loss of consciousness [Recovered/Resolved]
  - Vision blurred [Unknown]
  - Dysarthria [Unknown]
  - Gait disturbance [Unknown]
  - Fall [Unknown]
  - Abasia [Unknown]
  - Asthma [Unknown]

NARRATIVE: CASE EVENT DATE: 20140915
